FAERS Safety Report 6167475-1 (Version None)
Quarter: 2009Q2

REPORT INFORMATION
  Report Type: 
  Country: None (occurrence: None)
  Receive Date: 20090424
  Receipt Date: 20090416
  Transmission Date: 20091009
  Serious: Yes (Other)
  Sender: FDA-Public Use
  Company Number: FR-SANOFI-SYNTHELABO-F01200900382

PATIENT
  Sex: Male
  Weight: 101 kg

DRUGS (4)
  1. RITUXIMAB [Suspect]
     Dosage: DAY 1 EVERY 2 WEEKS
     Route: 041
  2. OXALIPLATIN [Suspect]
     Indication: DIFFUSE LARGE B-CELL LYMPHOMA RECURRENT
     Dosage: DAY 2 EVERY 2 WEEKS UNK
     Route: 041
  3. GEMCITABINE HCL [Suspect]
     Dosage: DAY 2 EVERY 2 WEEKS
     Route: 041
  4. ENZASTAURIN [Suspect]
     Route: 048
     Dates: start: 20070829, end: 20090402

REACTIONS (1)
  - MYELODYSPLASTIC SYNDROME [None]
